FAERS Safety Report 6111886-7 (Version None)
Quarter: 2009Q1

REPORT INFORMATION
  Report Type: 
  Country: None (occurrence: None)
  Receive Date: 20090311
  Receipt Date: 20090225
  Transmission Date: 20090719
  Serious: Yes (Other)
  Sender: FDA-Public Use
  Company Number: US-WATSON-2009-01381

PATIENT
  Sex: Female

DRUGS (7)
  1. PENTAZOCINE + NALOXONE (WATSON LABORATORIES) [Suspect]
     Indication: MYALGIA
     Dosage: 2 TABLET, 5 TIMES A DAY
     Route: 048
     Dates: start: 20080623, end: 20080701
  2. PENTAZOCINE + NALOXONE (WATSON LABORATORIES) [Suspect]
     Indication: ARTHRALGIA
  3. HYDROCODONE BITARTRATE AND ACETAMINOPHEN [Suspect]
     Indication: BREAKTHROUGH PAIN
     Dosage: 2 TABLET, Q4H
     Route: 048
     Dates: start: 20080601
  4. NALOXONE W/PENTAZOCINE [Suspect]
     Indication: MYALGIA
     Dosage: UNK
     Route: 048
     Dates: start: 20080501, end: 20080601
  5. NALOXONE W/PENTAZOCINE [Suspect]
     Indication: ARTHRALGIA
  6. TRAMADOL HCL [Concomitant]
     Indication: BREAKTHROUGH PAIN
     Dosage: 100 MG, QID
     Route: 048
     Dates: start: 19890101
  7. VALIUM [Concomitant]
     Indication: PANIC ATTACK
     Dosage: 5 MG, TID
     Route: 048
     Dates: start: 19940101

REACTIONS (9)
  - BRUXISM [None]
  - CONVULSION [None]
  - DIARRHOEA [None]
  - DRUG INEFFECTIVE [None]
  - GINGIVAL ERYTHEMA [None]
  - HEART RATE INCREASED [None]
  - PALPITATIONS [None]
  - TONGUE BITING [None]
  - WITHDRAWAL SYNDROME [None]
